FAERS Safety Report 19624728 (Version 1)
Quarter: 2021Q3

REPORT INFORMATION
  Report Type: Spontaneous
  Country: DE (occurrence: DE)
  Receive Date: 20210728
  Receipt Date: 20210728
  Transmission Date: 20211014
  Serious: Yes (Hospitalization)
  Sender: FDA-Public Use
  Company Number: DE-TEVA-2021-DE-1936365

PATIENT
  Age: 65 Year
  Sex: Male

DRUGS (1)
  1. AMLODIPINE [Suspect]
     Active Substance: AMLODIPINE BESYLATE
     Indication: HYPERTENSION
     Route: 065

REACTIONS (7)
  - Hypovolaemic shock [Unknown]
  - Overdose [Unknown]
  - Anterograde amnesia [Unknown]
  - Embolic stroke [Unknown]
  - Accidental exposure to product [Unknown]
  - Toxicity to various agents [Unknown]
  - Atrial fibrillation [Unknown]
